FAERS Safety Report 17781366 (Version 1)
Quarter: 2020Q2

REPORT INFORMATION
  Report Type: Spontaneous
  Country: US (occurrence: US)
  Receive Date: 20200513
  Receipt Date: 20200513
  Transmission Date: 20200714
  Serious: Yes (Other)
  Sender: FDA-Public Use
  Company Number: None

PATIENT
  Age: 23 Year
  Sex: Male
  Weight: 63.9 kg

DRUGS (2)
  1. REMICADE [Suspect]
     Active Substance: INFLIXIMAB
     Indication: SELECTIVE IGG SUBCLASS DEFICIENCY
     Dosage: ?          OTHER FREQUENCY:EVERY 8 WEEKS;?
     Route: 042
  2. PRIVIGEN [Suspect]
     Active Substance: HUMAN IMMUNOGLOBULIN G
     Indication: SELECTIVE IGG SUBCLASS DEFICIENCY
     Dosage: ?          OTHER FREQUENCY:IV EVERY 3 WEEKS;?
     Route: 042

REACTIONS (5)
  - Constipation [None]
  - Abdominal adhesions [None]
  - Renal disorder [None]
  - Pyrexia [None]
  - Ureteric obstruction [None]

NARRATIVE: CASE EVENT DATE: 20200501
